FAERS Safety Report 17760822 (Version 1)
Quarter: 2020Q2

REPORT INFORMATION
  Report Type: Spontaneous
  Country: FR (occurrence: FR)
  Receive Date: 20200508
  Receipt Date: 20200508
  Transmission Date: 20200714
  Serious: Yes (Life-Threatening)
  Sender: FDA-Public Use
  Company Number: FR-TEVA-2020-FR-1230952

PATIENT
  Age: 57 Year
  Sex: Female
  Weight: 67.5 kg

DRUGS (3)
  1. IOMERON [Suspect]
     Active Substance: IOMEPROL
     Indication: SCAN BRAIN
     Dosage: 1 DOSAGE FORM
     Route: 042
     Dates: start: 202001
  2. LANSOPRAZOLE. [Suspect]
     Active Substance: LANSOPRAZOLE
     Indication: PROPHYLAXIS
     Dosage: 15 MG
     Route: 048
     Dates: start: 202001, end: 20200403
  3. LERCAN 10 MG, COMPRIM? PELLICUL? S?CABLE [Suspect]
     Active Substance: LERCANIDIPINE HYDROCHLORIDE
     Indication: PRODUCT USED FOR UNKNOWN INDICATION
     Dosage: 1 DOSAGE FORM
     Route: 048
     Dates: start: 20200319, end: 20200403

REACTIONS (2)
  - Toxic skin eruption [Recovering/Resolving]
  - Multiple organ dysfunction syndrome [Recovered/Resolved]

NARRATIVE: CASE EVENT DATE: 20200403
